FAERS Safety Report 20673958 (Version 5)
Quarter: 2023Q4

REPORT INFORMATION
  Report Type: Report from Study
  Country: CA (occurrence: CA)
  Receive Date: 20220405
  Receipt Date: 20231031
  Transmission Date: 20240109
  Serious: Yes (Hospitalization)
  Sender: FDA-Public Use
  Company Number: CA-MYLANLABS-2022M1005750

PATIENT
  Age: 38 Year
  Sex: Female

DRUGS (1)
  1. HULIO [Suspect]
     Active Substance: ADALIMUMAB-FKJP
     Indication: Crohn^s disease
     Dosage: UNK
     Route: 058

REACTIONS (10)
  - Abdominal discomfort [Unknown]
  - Infection [Unknown]
  - Headache [Unknown]
  - Vertigo [Unknown]
  - Tinnitus [Unknown]
  - Aneurysm [Unknown]
  - Fatigue [Unknown]
  - Dehydration [Unknown]
  - Product dose omission issue [Unknown]
  - Therapy interrupted [Unknown]

NARRATIVE: CASE EVENT DATE: 20220429
